FAERS Safety Report 4371593-8 (Version None)
Quarter: 2004Q2

REPORT INFORMATION
  Report Type: 
  Country: None (occurrence: None)
  Receive Date: 20040602
  Receipt Date: 20040517
  Transmission Date: 20050107
  Serious: Yes (Hospitalization)
  Sender: FDA-Public Use
  Company Number: 196178

PATIENT
  Age: 66 Year
  Sex: Female
  Weight: 67.1324 kg

DRUGS (4)
  1. AVONEX [Suspect]
     Indication: MULTIPLE SCLEROSIS
     Dosage: 30 MCG QW; IM
     Route: 030
     Dates: start: 20040414, end: 20040414
  2. SYNTHROID [Concomitant]
  3. NEURONTIN [Concomitant]
  4. PAXIL [Concomitant]

REACTIONS (9)
  - ASTHENIA [None]
  - COMA [None]
  - CONFUSIONAL STATE [None]
  - CYSTITIS [None]
  - FACIAL PALSY [None]
  - FALL [None]
  - INFLUENZA LIKE ILLNESS [None]
  - PARALYSIS [None]
  - URINARY TRACT INFECTION [None]
